FAERS Safety Report 10205797 (Version 2)
Quarter: 2014Q3

REPORT INFORMATION
  Report Type: Spontaneous
  Country: FR (occurrence: FR)
  Receive Date: 20140530
  Receipt Date: 20140725
  Transmission Date: 20150326
  Serious: Yes (Hospitalization, Other)
  Sender: FDA-Public Use
  Company Number: FR-BIOGENIDEC-2014BI049893

PATIENT
  Age: 71 Year
  Sex: Female
  Weight: 62 kg

DRUGS (16)
  1. ZOXAN [Concomitant]
     Active Substance: DOXAZOSIN MESYLATE
  2. TEMESTA [Concomitant]
     Active Substance: LORAZEPAM
  3. TRAMADOL PR [Concomitant]
  4. INORIAL [Concomitant]
     Active Substance: BILASTINE
  5. OROKEN [Concomitant]
     Active Substance: CEFIXIME
  6. PARACETAMOL [Concomitant]
     Active Substance: ACETAMINOPHEN
  7. LYRICA [Concomitant]
     Active Substance: PREGABALIN
     Indication: PAIN
  8. ARIMIDEX [Concomitant]
     Active Substance: ANASTROZOLE
  9. LEVOTHYROX [Concomitant]
     Active Substance: LEVOTHYROXINE
  10. FOSAVANCE [Concomitant]
     Active Substance: ALENDRONATE SODIUM\CHOLECALCIFEROL
  11. ISOXAN [Concomitant]
  12. CELESTENE [Concomitant]
     Active Substance: BETAMETHASONE
  13. AVONEX [Suspect]
     Active Substance: INTERFERON BETA-1A
     Indication: MULTIPLE SCLEROSIS
     Route: 030
     Dates: end: 20140520
  14. STABLON [Concomitant]
     Active Substance: TIANEPTINE
  15. ARICEPT [Concomitant]
     Active Substance: DONEPEZIL HYDROCHLORIDE
     Dates: end: 20140517
  16. LESCOL [Concomitant]
     Active Substance: FLUVASTATIN SODIUM

REACTIONS (3)
  - Hepatitis B [Unknown]
  - Drug-induced liver injury [Not Recovered/Not Resolved]
  - Breast cancer [Unknown]

NARRATIVE: CASE EVENT DATE: 2010
